FAERS Safety Report 4604509-7 (Version None)
Quarter: 2005Q2

REPORT INFORMATION
  Report Type: 
  Country: None (occurrence: None)
  Receive Date: 20050223
  Receipt Date: 20041122
  Transmission Date: 20051028
  Serious: No
  Sender: FDA-Public Use
  Company Number: PHEH2004US12567

PATIENT
  Age: 84 Year
  Sex: Male

DRUGS (1)
  1. ZELNORM [Suspect]
     Indication: CONSTIPATION
     Dosage: BID

REACTIONS (4)
  - AGITATION [None]
  - DRUG INEFFECTIVE [None]
  - NERVOUSNESS [None]
  - RESTLESSNESS [None]
